FAERS Safety Report 6255509-5 (Version None)
Quarter: 2009Q2

REPORT INFORMATION
  Report Type: 
  Country: None (occurrence: None)
  Receive Date: 20090630
  Receipt Date: 20090616
  Transmission Date: 20091009
  Serious: Yes (Other)
  Sender: FDA-Public Use
  Company Number: 2009US002458

PATIENT

DRUGS (3)
  1. PROGRAF [Suspect]
     Indication: RENAL AND PANCREAS TRANSPLANT
  2. EVEROLIMUS (EVEROLIMUS) [Concomitant]
  3. PREDNISONE TAB [Concomitant]

REACTIONS (2)
  - DISEASE RECURRENCE [None]
  - GLOMERULONEPHROPATHY [None]
